FAERS Safety Report 19841706 (Version 1)
Quarter: 2021Q3

REPORT INFORMATION
  Report Type: Report from Study
  Country: JP (occurrence: JP)
  Receive Date: 20210916
  Receipt Date: 20210916
  Transmission Date: 20211014
  Serious: Yes (Death, Other)
  Sender: FDA-Public Use
  Company Number: JP-ORPHANEU-2017000021

PATIENT

DRUGS (8)
  1. CARBAGLU [Suspect]
     Active Substance: CARGLUMIC ACID
     Indication: HYPERAMMONAEMIA
     Dosage: 600 MILLIGRAM/DAY(194MG/KG/DAY AFTER MEAL)
     Dates: start: 20161214, end: 20161228
  2. MERCAZOLE [Concomitant]
     Active Substance: CARBIMAZOLE
     Indication: THYROID HORMONES INCREASED
     Dosage: 2 MILLIGRAM, DAILY
     Dates: start: 20161213, end: 20161228
  3. CITRULLINE [Concomitant]
     Active Substance: CITRULLINE
     Indication: CARBAMOYL PHOSPHATE SYNTHETASE DEFICIENCY
     Dosage: 1.2 GRAM, DAILY
     Dates: start: 201610, end: 20161228
  4. BIOTIN [Concomitant]
     Active Substance: BIOTIN
     Indication: CARBAMOYL PHOSPHATE SYNTHETASE DEFICIENCY
  5. ARGININE [Concomitant]
     Active Substance: ARGININE
     Indication: CARBAMOYL PHOSPHATE SYNTHETASE DEFICIENCY
     Dosage: 1.5 GRAM, DAILY
     Dates: start: 201610, end: 20161228
  6. L?CARNITINE [LEVOCARNITINE] [Concomitant]
     Active Substance: LEVOCARNITINE
     Indication: CARBAMOYL PHOSPHATE SYNTHETASE DEFICIENCY
     Dosage: 300 MILLIGRAM, DAILY
     Dates: start: 201610, end: 20161228
  7. BUPHENYL [Concomitant]
     Active Substance: SODIUM PHENYLBUTYRATE
     Indication: CARBAMOYL PHOSPHATE SYNTHETASE DEFICIENCY
     Dosage: 1.2 GRAM
     Dates: start: 201610, end: 20161228
  8. BIOTIN [Concomitant]
     Active Substance: BIOTIN
     Indication: HYPERAMMONAEMIA
     Dosage: 22.5 MILLIGRAM, DAILY
     Dates: start: 201610, end: 20161228

REACTIONS (4)
  - Hepatic failure [Fatal]
  - Concomitant disease aggravated [Not Recovered/Not Resolved]
  - Off label use [Recovered/Resolved]
  - Drug ineffective for unapproved indication [Fatal]

NARRATIVE: CASE EVENT DATE: 201612
